FAERS Safety Report 5648931-9 (Version None)
Quarter: 2008Q1

REPORT INFORMATION
  Report Type: 
  Country: None (occurrence: None)
  Receive Date: 20080304
  Receipt Date: 20080222
  Transmission Date: 20080703
  Serious: Yes (Hospitalization)
  Sender: FDA-Public Use
  Company Number: FR-JNJFOC-20080205569

PATIENT
  Sex: Female

DRUGS (15)
  1. IMODIUM [Suspect]
     Indication: NAUSEA
     Route: 048
  2. IMODIUM [Suspect]
     Indication: ANTIDIARRHOEAL SUPPORTIVE CARE
     Route: 048
  3. NEXAVAR [Suspect]
     Indication: HEPATIC NEOPLASM MALIGNANT
     Route: 048
     Dates: start: 20071211, end: 20080103
  4. GELUPRANE [Concomitant]
     Indication: ANALGESIA
     Route: 048
  5. CETORNAN [Concomitant]
     Route: 048
  6. LEXOMIL [Concomitant]
     Route: 048
  7. LEXOMIL [Concomitant]
     Indication: ANXIETY
     Route: 048
  8. DEXERYL CREAM [Concomitant]
     Indication: PALMAR-PLANTAR ERYTHRODYSAESTHESIA SYNDROME
     Route: 061
  9. LIPANTHYL [Concomitant]
     Indication: HYPERCHOLESTEROLAEMIA
  10. PRIMPERAN INJ [Concomitant]
     Indication: NAUSEA
     Route: 048
  11. ZOPHREN [Concomitant]
     Indication: NAUSEA
     Route: 048
  12. PERFALGAN [Concomitant]
  13. SPASFON [Concomitant]
     Route: 048
  14. LOVENOX [Concomitant]
     Route: 058
  15. ACUPAN [Concomitant]

REACTIONS (3)
  - HYPERTENSIVE CRISIS [None]
  - NAUSEA [None]
  - VERTIGO [None]
